FAERS Safety Report 22007885 (Version 1)
Quarter: 2023Q1

REPORT INFORMATION
  Report Type: Spontaneous
  Country: US (occurrence: US)
  Receive Date: 20230218
  Receipt Date: 20230218
  Transmission Date: 20230418
  Serious: No
  Sender: FDA-Public Use
  Company Number: US-002147023-NVSC2023US038042

PATIENT
  Sex: Male

DRUGS (1)
  1. TAFINLAR [Suspect]
     Active Substance: DABRAFENIB MESYLATE
     Indication: Benign bone neoplasm
     Dosage: 150 MG, Q12H
     Route: 048
     Dates: start: 20230126

REACTIONS (2)
  - Rash [Unknown]
  - Product use in unapproved indication [Unknown]
